FAERS Safety Report 10363724 (Version 1)
Quarter: 2014Q3

REPORT INFORMATION
  Report Type: Spontaneous
  Country: US (occurrence: None)
  Receive Date: 20140801
  Receipt Date: 20140801
  Transmission Date: 20150326
  Serious: Yes (Death)
  Sender: FDA-Public Use
  Company Number: CPI 6222

PATIENT
  Age: 64 Year
  Sex: Male

DRUGS (1)
  1. N-ACETYLCYSTEINE [Suspect]
     Active Substance: ACETYLCYSTEINE
     Indication: OVERDOSE
     Dosage: UNKNOWN DOSE, FREQ IV

REACTIONS (8)
  - Ammonia increased [None]
  - Depressed level of consciousness [None]
  - Brain oedema [None]
  - Myoclonus [None]
  - Lethargy [None]
  - Hypophagia [None]
  - Drug ineffective [None]
  - Asterixis [None]

NARRATIVE: CASE EVENT DATE: 2013
